FAERS Safety Report 8244868-X (Version None)
Quarter: 2012Q1

REPORT INFORMATION
  Report Type: 
  Country: None (occurrence: None)
  Receive Date: 20120329
  Receipt Date: 20110715
  Transmission Date: 20120608
  Serious: No
  Sender: FDA-Public Use
  Company Number: US-MYLANLABS-2011S1014762

PATIENT
  Age: 71 Year
  Sex: Female

DRUGS (7)
  1. AMLODIPINE [Concomitant]
  2. CITALOPRAM HYDROBROMIDE [Concomitant]
  3. OXYCODONE HCL [Concomitant]
  4. FENTANYL-100 [Suspect]
     Indication: PAIN
     Dosage: Q72H
     Route: 062
     Dates: start: 20100101
  5. DIAZEPAM [Concomitant]
  6. DIOVAN [Concomitant]
  7. PLAVIX [Concomitant]

REACTIONS (3)
  - APPLICATION SITE ERYTHEMA [None]
  - APPLICATION SITE HAEMATOMA [None]
  - APPLICATION SITE PRURITUS [None]
